FAERS Safety Report 7154486-2 (Version None)
Quarter: 2010Q4

REPORT INFORMATION
  Report Type: 
  Country: None (occurrence: None)
  Receive Date: 20101213
  Receipt Date: 20101202
  Transmission Date: 20110411
  Serious: Yes (Disabling)
  Sender: FDA-Public Use
  Company Number: GB-BRISTOL-MYERS SQUIBB COMPANY-15433287

PATIENT
  Age: 62 Year
  Sex: Female
  Weight: 117 kg

DRUGS (11)
  1. METFORMIN HCL [Suspect]
     Indication: DIABETES MELLITUS
     Route: 048
     Dates: end: 20100929
  2. ASPIRIN [Concomitant]
  3. BENDROFLUMETHIAZIDE [Concomitant]
     Indication: HYPERTENSION
  4. BISOPROLOL [Concomitant]
  5. EZETIMIBE [Concomitant]
  6. FLUOXETINE [Concomitant]
  7. GLICLAZIDE [Concomitant]
  8. GLYCERYL TRINITRATE [Concomitant]
  9. ISOTARD XL [Concomitant]
  10. ROSIGLITAZONE [Concomitant]
  11. SIMVASTATIN [Concomitant]

REACTIONS (1)
  - FAECAL INCONTINENCE [None]
